FAERS Safety Report 10237088 (Version 2)
Quarter: 2014Q2

REPORT INFORMATION
  Report Type: Spontaneous
  Country: US (occurrence: US)
  Receive Date: 20140613
  Receipt Date: 20140613
  Transmission Date: 20141212
  Serious: No
  Sender: FDA-Public Use
  Company Number: US-ASTRAZENECA-2014SE22128

PATIENT
  Age: 57 Year
  Sex: Male
  Weight: 79.4 kg

DRUGS (6)
  1. FARXIGA [Suspect]
     Indication: DIABETES MELLITUS INADEQUATE CONTROL
     Route: 048
     Dates: start: 20140226, end: 20140311
  2. PULMICORT [Suspect]
  3. JANUMET [Suspect]
  4. SIMVASTATIN [Suspect]
  5. ADVAIR [Suspect]
  6. ACTOS [Suspect]

REACTIONS (1)
  - Haematochezia [Unknown]
